FAERS Safety Report 17247110 (Version 1)
Quarter: 2020Q1

REPORT INFORMATION
  Report Type: Spontaneous
  Country: US (occurrence: US)
  Receive Date: 20200107
  Receipt Date: 20200107
  Transmission Date: 20200409
  Serious: Yes (Life-Threatening, Other)
  Sender: FDA-Public Use
  Company Number: None

PATIENT
  Age: 81 Year
  Sex: Male

DRUGS (9)
  1. LANTUS [Concomitant]
     Active Substance: INSULIN GLARGINE
     Dates: start: 20080101
  2. DORZOLAMIDE/TIMOLOL OPTH [Concomitant]
     Dates: start: 20180126
  3. SIMVASTATIN 20MG [Concomitant]
     Active Substance: SIMVASTATIN
     Dates: start: 20180326
  4. LISINOPRIL. [Concomitant]
     Active Substance: LISINOPRIL
     Dates: start: 20180306
  5. GLIMEPERIDE [Suspect]
     Active Substance: GLIMEPIRIDE
     Indication: DIABETES MELLITUS
     Route: 048
     Dates: start: 19800101
  6. PANTOPRAZOLE 40MG [Concomitant]
     Active Substance: PANTOPRAZOLE SODIUM
     Dates: start: 20180326
  7. CHLORDIAZEPOXIDE 25MG [Concomitant]
     Active Substance: CHLORDIAZEPOXIDE
     Dates: start: 20190822
  8. AMLODIPINE [Concomitant]
     Active Substance: AMLODIPINE BESYLATE
     Dates: start: 20180424
  9. RHOPRESSA 0.02% OPTH [Concomitant]
     Dates: start: 20191101

REACTIONS (3)
  - Therapeutic response changed [None]
  - Blood glucose decreased [None]
  - Product substitution issue [None]

NARRATIVE: CASE EVENT DATE: 20191216
